FAERS Safety Report 5511311-0 (Version None)
Quarter: 2007Q4

REPORT INFORMATION
  Report Type: 
  Country: None (occurrence: None)
  Receive Date: 20071109
  Receipt Date: 20070816
  Transmission Date: 20080405
  Serious: Yes (Hospitalization)
  Sender: FDA-Public Use
  Company Number: A0671175A

PATIENT

DRUGS (2)
  1. ALTABAX [Suspect]
     Indication: DIABETIC FOOT
     Route: 061
  2. ANTIBIOTIC [Concomitant]
     Route: 048

REACTIONS (1)
  - DRUG INEFFECTIVE [None]
